FAERS Safety Report 6870788-9 (Version None)
Quarter: 2010Q3

REPORT INFORMATION
  Report Type: 
  Country: None (occurrence: None)
  Receive Date: 20100721
  Receipt Date: 20100712
  Transmission Date: 20110219
  Serious: Yes (Other)
  Sender: FDA-Public Use
  Company Number: CL-181-2010 (20654670)

PATIENT
  Age: 73 Year
  Sex: Female

DRUGS (2)
  1. METRONIDAZOLE [Suspect]
     Indication: TOOTH INFECTION
     Dosage: THREE TIMES/DAY ORAL
     Route: 048
     Dates: start: 20080606
  2. PEPPERMINT [Concomitant]

REACTIONS (13)
  - DECREASED APPETITE [None]
  - DEPRESSION [None]
  - DIZZINESS [None]
  - GAIT DISTURBANCE [None]
  - HEADACHE [None]
  - LACRIMATION INCREASED [None]
  - MUSCULAR WEAKNESS [None]
  - NIGHT SWEATS [None]
  - PANIC ATTACK [None]
  - PARAESTHESIA [None]
  - RASH [None]
  - SHOCK [None]
  - WEIGHT DECREASED [None]
